FAERS Safety Report 9439727 (Version 1)
Quarter: 2013Q3

REPORT INFORMATION
  Report Type: Spontaneous
  Country: US (occurrence: None)
  Receive Date: 20130802
  Receipt Date: 20130802
  Transmission Date: 20140515
  Serious: Yes (Other)
  Sender: FDA-Public Use
  Company Number: None

PATIENT
  Age: 68 Year
  Sex: Male

DRUGS (7)
  1. TEMODAR [Suspect]
     Dosage: 140MG DAILY PO (7 ON 7 OFF)
     Route: 048
     Dates: start: 20120501, end: 20130715
  2. IMMODIUM [Concomitant]
  3. AMBIEN [Concomitant]
  4. LISINOPRIL [Concomitant]
  5. BUPROPION [Concomitant]
  6. ASPIRIN [Concomitant]
  7. PROCHLORPERAZINE [Concomitant]

REACTIONS (2)
  - Treatment failure [None]
  - Neoplasm progression [None]
